FAERS Safety Report 9018341 (Version 2)
Quarter: 2013Q1

REPORT INFORMATION
  Report Type: Report from Study
  Country: JP (occurrence: JP)
  Receive Date: 20130117
  Receipt Date: 20130128
  Transmission Date: 20140127
  Serious: Yes (Other)
  Sender: FDA-Public Use
  Company Number: JP-ROCHE-GNE302282

PATIENT
  Age: 0 Year
  Sex: Female
  Weight: .5 kg

DRUGS (20)
  1. XOLAIR [Suspect]
     Indication: ASTHMA
     Route: 064
     Dates: start: 20090804
  2. XOLAIR [Suspect]
     Route: 064
     Dates: start: 20090818
  3. XOLAIR [Suspect]
     Route: 064
     Dates: start: 20090901
  4. XOLAIR [Suspect]
     Route: 064
     Dates: start: 20090915
  5. XOLAIR [Suspect]
     Route: 064
     Dates: start: 20090929
  6. XOLAIR [Suspect]
     Route: 064
     Dates: start: 20091013
  7. XOLAIR [Suspect]
     Route: 064
     Dates: start: 20091027, end: 20091031
  8. XOLAIR [Suspect]
     Route: 063
  9. FLUTICASONE PROPIONATE/SALMETEROL XINAFOATE [Concomitant]
     Route: 064
     Dates: start: 20080701
  10. SINGULAIR [Concomitant]
     Route: 064
     Dates: start: 20030502
  11. THEOPHYLLINE [Concomitant]
     Route: 064
     Dates: start: 19930223
  12. PREDONINE [Concomitant]
     Route: 064
     Dates: start: 19950119
  13. PREDONINE [Concomitant]
     Dosage: INCREASED
     Route: 064
  14. PREDONINE [Concomitant]
     Dosage: UNK
     Route: 064
  15. PREDONINE [Concomitant]
     Dosage: UNK
     Route: 064
  16. CLARITH [Concomitant]
     Route: 064
     Dates: start: 19910717
  17. RITODRINE HYDROCHLORIDE [Concomitant]
     Route: 064
     Dates: start: 20100206, end: 20100209
  18. ASPIRIN [Concomitant]
     Route: 064
  19. INFLUENZA VACCINE [Concomitant]
     Route: 064
  20. CICLESONIDE [Concomitant]
     Route: 064

REACTIONS (2)
  - Premature baby [Not Recovered/Not Resolved]
  - Foetal exposure during pregnancy [Unknown]
